FAERS Safety Report 14615346 (Version 1)
Quarter: 2018Q1

REPORT INFORMATION
  Report Type: Spontaneous
  Country: FR (occurrence: FR)
  Receive Date: 20180308
  Receipt Date: 20180308
  Transmission Date: 20180509
  Serious: Yes (Other)
  Sender: FDA-Public Use
  Company Number: FR-MERCK KGAA-2043357

PATIENT
  Age: 74 Year
  Sex: Male
  Weight: 80 kg

DRUGS (1)
  1. NOVOTHYROX [Suspect]
     Active Substance: LEVOTHYROXINE SODIUM
     Indication: PRODUCT USED FOR UNKNOWN INDICATION

REACTIONS (20)
  - Dizziness [Recovered/Resolved]
  - Diarrhoea [None]
  - Blood uric acid increased [None]
  - Depression [None]
  - Personality disorder [None]
  - Insomnia [None]
  - Glomerular filtration rate decreased [None]
  - Gait disturbance [None]
  - Aggression [None]
  - Abdominal pain [None]
  - Weight decreased [Recovered/Resolved]
  - Syncope [None]
  - Muscle spasms [Recovered/Resolved]
  - Irritability [None]
  - Fatigue [Recovered/Resolved]
  - Tri-iodothyronine decreased [None]
  - Blood creatinine increased [None]
  - Social avoidant behaviour [None]
  - Malaise [None]
  - Loss of personal independence in daily activities [None]

NARRATIVE: CASE EVENT DATE: 2017
